FAERS Safety Report 8420687 (Version 2)
Quarter: 2013Q1

REPORT INFORMATION
  Report Type: Report from Study
  Country: DE (occurrence: DE)
  Receive Date: 20120222
  Receipt Date: 20130211
  Transmission Date: 20140127
  Serious: Yes (Hospitalization)
  Sender: FDA-Public Use
  Company Number: DE-GLAXOSMITHKLINE-B0782863A

PATIENT
  Age: 64 Year
  Sex: Female
  Weight: 69 kg

DRUGS (5)
  1. LAPATINIB [Suspect]
     Indication: BREAST CANCER
     Dosage: 750MG PER DAY
     Route: 048
     Dates: start: 20120105
  2. TAXOL [Suspect]
     Indication: BREAST CANCER
     Dosage: 150MG WEEKLY
     Route: 042
     Dates: start: 20120105
  3. MYOCET [Suspect]
     Indication: BREAST CANCER
     Dosage: 38MG WEEKLY
     Route: 042
     Dates: start: 20120105
  4. CARBOPLATIN [Suspect]
     Indication: BREAST CANCER
     Dosage: 260MG WEEKLY
     Route: 042
     Dates: start: 20120105
  5. HERCEPTIN [Suspect]
     Indication: BREAST CANCER
     Dosage: 460MG EVERY 3 WEEKS
     Route: 042
     Dates: start: 20120105

REACTIONS (1)
  - Muscle spasms [Not Recovered/Not Resolved]
